FAERS Safety Report 25012068 (Version 1)
Quarter: 2025Q1

REPORT INFORMATION
  Report Type: Spontaneous
  Country: US (occurrence: US)
  Receive Date: 20250226
  Receipt Date: 20250226
  Transmission Date: 20250409
  Serious: Yes (Hospitalization, Other)
  Sender: BAXTER
  Company Number: US-BAXTER-2022BAX010099

PATIENT
  Age: 61 Year
  Sex: Female
  Weight: 57.1 kg

DRUGS (12)
  1. NEXTERONE [Suspect]
     Active Substance: AMIODARONE HYDROCHLORIDE
     Indication: Product used for unknown indication
     Route: 065
  2. TREPROSTINIL [Suspect]
     Active Substance: TREPROSTINIL
     Indication: Pulmonary arterial hypertension
     Route: 041
     Dates: start: 20200723
  3. ELIQUIS [Concomitant]
     Active Substance: APIXABAN
     Indication: Anticoagulant therapy
     Route: 065
  4. EFFEXOR [Concomitant]
     Active Substance: VENLAFAXINE HYDROCHLORIDE
     Route: 065
     Dates: start: 20220402
  5. ALDACTONE [Concomitant]
     Active Substance: SPIRONOLACTONE
     Route: 065
     Dates: start: 20210915
  6. K-TAB [Concomitant]
     Active Substance: POTASSIUM CHLORIDE
     Route: 065
     Dates: start: 20210816
  7. DEMADEX [Concomitant]
     Active Substance: TORSEMIDE
     Route: 065
     Dates: start: 20210622
  8. ADEMPAS [Concomitant]
     Active Substance: RIOCIGUAT
     Route: 065
     Dates: start: 20210521
  9. LANOXIN [Concomitant]
     Active Substance: DIGOXIN
     Route: 065
     Dates: start: 20210317
  10. INDERAL [Concomitant]
     Active Substance: PROPRANOLOL HYDROCHLORIDE
     Route: 065
  11. TAPAZOLE [Concomitant]
     Active Substance: METHIMAZOLE
     Route: 065
  12. FLONASE SENSIMIST ALLERGY RELIEF [Concomitant]
     Active Substance: FLUTICASONE FUROATE
     Route: 065
     Dates: start: 20191014

REACTIONS (25)
  - Staphylococcal sepsis [Recovering/Resolving]
  - Gram stain positive [Recovering/Resolving]
  - Nausea [Recovering/Resolving]
  - Diarrhoea [Recovering/Resolving]
  - Malaise [Recovering/Resolving]
  - Fatigue [Recovering/Resolving]
  - Abdominal distension [Recovering/Resolving]
  - Night sweats [Recovering/Resolving]
  - Hyperthyroidism [Not Recovered/Not Resolved]
  - Vascular device infection [Recovering/Resolving]
  - Injection site erythema [Recovering/Resolving]
  - Injection site swelling [Recovering/Resolving]
  - Pain [Recovering/Resolving]
  - Skin irritation [Recovering/Resolving]
  - Injection site pain [Recovering/Resolving]
  - Pyrexia [Recovering/Resolving]
  - Chronic respiratory failure [Not Recovered/Not Resolved]
  - Dyspnoea exertional [Not Recovered/Not Resolved]
  - Catheter site cellulitis [Not Recovered/Not Resolved]
  - Chronic right ventricular failure [Not Recovered/Not Resolved]
  - Atrial fibrillation [Not Recovered/Not Resolved]
  - Jugular vein thrombosis [Recovered/Resolved]
  - Headache [Recovered/Resolved]
  - Hyponatraemia [Not Recovered/Not Resolved]
  - Leukocytosis [Unknown]

NARRATIVE: CASE EVENT DATE: 20220320
